FAERS Safety Report 15760575 (Version 6)
Quarter: 2019Q3

REPORT INFORMATION
  Report Type: Spontaneous
  Country: US (occurrence: US)
  Receive Date: 20181226
  Receipt Date: 20190926
  Transmission Date: 20191004
  Serious: No
  Sender: FDA-Public Use
  Company Number: US-PFIZER INC-2018526866

PATIENT
  Age: 38 Year
  Sex: Female

DRUGS (44)
  1. DOCETAXEL. [Suspect]
     Active Substance: DOCETAXEL
     Dosage: 80 MG, SINGLE
     Dates: start: 20150518, end: 20150518
  2. DOCETAXEL. [Suspect]
     Active Substance: DOCETAXEL
     Dosage: 20 MG, SINGLE
     Dates: start: 20150811, end: 20150811
  3. DOCETAXEL. [Suspect]
     Active Substance: DOCETAXEL
     Indication: BREAST CANCER METASTATIC
     Dosage: 80 MG, SINGLE
     Dates: start: 20150427, end: 20150427
  4. DOCETAXEL. [Suspect]
     Active Substance: DOCETAXEL
     Dosage: 80 MG, SINGLE
     Dates: start: 20150518, end: 20150518
  5. DOCEFREZ [Suspect]
     Active Substance: DOCETAXEL ANHYDROUS
     Indication: BREAST CANCER METASTATIC
     Dosage: 80 MG, SINGLE
     Dates: start: 20150427, end: 20150427
  6. DOCETAXEL SANOFI-AVENTIS [Suspect]
     Active Substance: DOCETAXEL
     Dosage: 20 MG, SINGLE
     Dates: start: 20150901, end: 20150901
  7. DOCETAXEL SAGENT [Suspect]
     Active Substance: DOCETAXEL
     Dosage: 20 MG, SINGLE
     Dates: start: 20150721, end: 20150721
  8. TAXOTERE [Concomitant]
     Active Substance: DOCETAXEL
     Indication: CHEMOTHERAPY
     Dosage: UNK
  9. DOCETAXEL. [Suspect]
     Active Substance: DOCETAXEL
     Dosage: 20 MG, SINGLE
     Dates: start: 20150721, end: 20150721
  10. DOCETAXEL. [Suspect]
     Active Substance: DOCETAXEL
     Dosage: 80 MG, SINGLE
     Dates: start: 20150608, end: 20150608
  11. DOCETAXEL. [Suspect]
     Active Substance: DOCETAXEL
     Dosage: 20 MG, SINGLE
     Dates: start: 20150811, end: 20150811
  12. DOCETAXEL SANDOZ [Suspect]
     Active Substance: DOCETAXEL
     Dosage: 20 MG, SINGLE
     Dates: start: 20150901, end: 20150901
  13. DOCETAXEL SAGENT [Suspect]
     Active Substance: DOCETAXEL
     Indication: BREAST CANCER METASTATIC
     Dosage: 80 MG, SINGLE
     Dates: start: 20150427, end: 20150427
  14. DOCETAXEL. [Suspect]
     Active Substance: DOCETAXEL
     Indication: BREAST CANCER METASTATIC
     Dosage: 80 MG, SINGLE
     Dates: start: 20150427, end: 20150427
  15. DOCETAXEL. [Suspect]
     Active Substance: DOCETAXEL
     Dosage: 20 MG, SINGLE
     Dates: start: 20150901, end: 20150901
  16. DOCEFREZ [Suspect]
     Active Substance: DOCETAXEL ANHYDROUS
     Dosage: 20 MG, SINGLE
     Dates: start: 20150901, end: 20150901
  17. DOCETAXEL SANOFI-AVENTIS [Suspect]
     Active Substance: DOCETAXEL
     Indication: BREAST CANCER METASTATIC
     Dosage: 80 MG, SINGLE
     Dates: start: 20150427, end: 20150427
  18. DOCETAXEL SANOFI-AVENTIS [Suspect]
     Active Substance: DOCETAXEL
     Dosage: 20 MG, SINGLE
     Dates: start: 20150721, end: 20150721
  19. DOCETAXEL SANOFI-AVENTIS [Suspect]
     Active Substance: DOCETAXEL
     Dosage: 20 MG, SINGLE
     Dates: start: 20150811, end: 20150811
  20. DOCETAXEL ACCORD [Suspect]
     Active Substance: DOCETAXEL
     Dosage: 80 MG, SINGLE
     Dates: start: 20150608, end: 20150608
  21. DOCETAXEL SAGENT [Suspect]
     Active Substance: DOCETAXEL
     Dosage: 80 MG, SINGLE
     Dates: start: 20150608, end: 20150608
  22. DOCETAXEL. [Suspect]
     Active Substance: DOCETAXEL
     Dosage: 20 MG, SINGLE
     Dates: start: 20150721, end: 20150721
  23. DOCEFREZ [Suspect]
     Active Substance: DOCETAXEL ANHYDROUS
     Dosage: 80 MG, SINGLE
     Dates: start: 20150518, end: 20150518
  24. DOCEFREZ [Suspect]
     Active Substance: DOCETAXEL ANHYDROUS
     Dosage: 80 MG, SINGLE
     Dates: start: 20150608, end: 20150608
  25. DOCEFREZ [Suspect]
     Active Substance: DOCETAXEL ANHYDROUS
     Dosage: 20 MG, SINGLE
     Dates: start: 20150811, end: 20150811
  26. DOCETAXEL ACCORD [Suspect]
     Active Substance: DOCETAXEL
     Dosage: 80 MG, SINGLE
     Dates: start: 20150518, end: 20150518
  27. DOCETAXEL ACCORD [Suspect]
     Active Substance: DOCETAXEL
     Dosage: 20 MG, SINGLE
     Dates: start: 20150901, end: 20150901
  28. DOCETAXEL SAGENT [Suspect]
     Active Substance: DOCETAXEL
     Dosage: 80 MG, SINGLE
     Dates: start: 20150518, end: 20150518
  29. DOCETAXEL SAGENT [Suspect]
     Active Substance: DOCETAXEL
     Dosage: 20 MG, SINGLE
     Dates: start: 20150811, end: 20150811
  30. DOCETAXEL. [Suspect]
     Active Substance: DOCETAXEL
     Dosage: 80 MG, SINGLE
     Dates: start: 20150608, end: 20150608
  31. DOCETAXEL SANOFI-AVENTIS [Suspect]
     Active Substance: DOCETAXEL
     Dosage: 80 MG, SINGLE
     Dates: start: 20150518, end: 20150518
  32. DOCETAXEL SANDOZ [Suspect]
     Active Substance: DOCETAXEL
     Dosage: 20 MG, SINGLE
     Dates: start: 20150721, end: 20150721
  33. PARAPLATIN [Concomitant]
     Active Substance: CARBOPLATIN
     Indication: CHEMOTHERAPY
     Dosage: UNK
  34. DOCEFREZ [Suspect]
     Active Substance: DOCETAXEL ANHYDROUS
     Dosage: 20 MG, SINGLE
     Dates: start: 20150721, end: 20150721
  35. DOCETAXEL SANOFI-AVENTIS [Suspect]
     Active Substance: DOCETAXEL
     Dosage: 80 MG, SINGLE
     Dates: start: 20150608, end: 20150608
  36. DOCETAXEL ACCORD [Suspect]
     Active Substance: DOCETAXEL
     Indication: BREAST CANCER METASTATIC
     Dosage: 80 MG, SINGLE
     Dates: start: 20150427, end: 20150427
  37. DOCETAXEL ACCORD [Suspect]
     Active Substance: DOCETAXEL
     Dosage: 20 MG, SINGLE
     Dates: start: 20150811, end: 20150811
  38. DOCETAXEL SAGENT [Suspect]
     Active Substance: DOCETAXEL
     Dosage: 20 MG, SINGLE
     Dates: start: 20150901, end: 20150901
  39. DOCETAXEL. [Suspect]
     Active Substance: DOCETAXEL
     Dosage: 20 MG, SINGLE
     Dates: start: 20150901, end: 20150901
  40. DOCETAXEL SANDOZ [Suspect]
     Active Substance: DOCETAXEL
     Indication: BREAST CANCER METASTATIC
     Dosage: 80 MG, SINGLE
     Dates: start: 20150427, end: 20150427
  41. DOCETAXEL SANDOZ [Suspect]
     Active Substance: DOCETAXEL
     Dosage: 80 MG, SINGLE
     Dates: start: 20150518, end: 20150518
  42. DOCETAXEL SANDOZ [Suspect]
     Active Substance: DOCETAXEL
     Dosage: 80 MG, SINGLE
     Dates: start: 20150608, end: 20150608
  43. DOCETAXEL SANDOZ [Suspect]
     Active Substance: DOCETAXEL
     Dosage: 20 MG, SINGLE
     Dates: start: 20150811, end: 20150811
  44. DOCETAXEL ACCORD [Suspect]
     Active Substance: DOCETAXEL
     Dosage: 20 MG, SINGLE
     Dates: start: 20150721, end: 20150721

REACTIONS (7)
  - Hair texture abnormal [Not Recovered/Not Resolved]
  - Madarosis [Not Recovered/Not Resolved]
  - Alopecia [Not Recovered/Not Resolved]
  - Hair disorder [Not Recovered/Not Resolved]
  - Hair colour changes [Not Recovered/Not Resolved]
  - Anxiety [Unknown]
  - Depression [Unknown]

NARRATIVE: CASE EVENT DATE: 201603
